FAERS Safety Report 9397031 (Version 2)
Quarter: 2013Q3

REPORT INFORMATION
  Report Type: Spontaneous
  Country: US (occurrence: US)
  Receive Date: 20130712
  Receipt Date: 20130730
  Transmission Date: 20140515
  Serious: Yes (Other)
  Sender: FDA-Public Use
  Company Number: US-ACCORD-018537

PATIENT
  Age: 18 Year
  Sex: Female

DRUGS (3)
  1. MYCOPHENOLATE MOFETIL [Suspect]
     Indication: GOODPASTURE^S SYNDROME
     Dosage: INCREASED TO 1,000 MG TWICE DAILY AFTER 1 WEEK
     Route: 048
  2. PREDNISONE [Suspect]
     Indication: GOODPASTURE^S SYNDROME
     Dosage: ON ALTERNATE DAYS
     Route: 048
  3. METHYLPREDNISOLONE [Suspect]
     Indication: GOODPASTURE^S SYNDROME

REACTIONS (3)
  - Disease recurrence [Recovered/Resolved]
  - Treatment noncompliance [Unknown]
  - Off label use [Unknown]
